FAERS Safety Report 9981187 (Version 1)
Quarter: 2014Q1

REPORT INFORMATION
  Report Type: Spontaneous
  Country: US (occurrence: None)
  Receive Date: 20140306
  Receipt Date: 20140306
  Transmission Date: 20141002
  Serious: Yes (Hospitalization)
  Sender: FDA-Public Use
  Company Number: None

PATIENT
  Age: 51 Year
  Sex: Female

DRUGS (5)
  1. MELOXICAM [Suspect]
     Indication: MUSCULOSKELETAL PAIN
     Route: 048
     Dates: start: 20140204, end: 20140224
  2. ATENEOL [Concomitant]
  3. ZETIN [Concomitant]
  4. ASPIRIN [Concomitant]
  5. ALEVE [Concomitant]

REACTIONS (5)
  - Fatigue [None]
  - Pain in jaw [None]
  - Pain in extremity [None]
  - Blood pressure increased [None]
  - Melaena [None]
